FAERS Safety Report 24805848 (Version 1)
Quarter: 2025Q1

REPORT INFORMATION
  Report Type: Spontaneous
  Country: US (occurrence: US)
  Receive Date: 20250103
  Receipt Date: 20250103
  Transmission Date: 20250409
  Serious: Yes (Disabling, Other)
  Sender: NOVO NORDISK
  Company Number: US-NOVOPROD-1333418

PATIENT
  Age: 65 Year

DRUGS (1)
  1. OZEMPIC [Suspect]
     Active Substance: SEMAGLUTIDE
     Indication: Obesity
     Route: 058
     Dates: start: 202308

REACTIONS (14)
  - Disability [Unknown]
  - Back pain [Unknown]
  - Neck pain [Unknown]
  - Depression [Unknown]
  - Mobility decreased [Unknown]
  - Spinal pain [Unknown]
  - Joint stiffness [Unknown]
  - Muscle tightness [Unknown]
  - Frustration tolerance decreased [Unknown]
  - Weight increased [Unknown]
  - Pain [Unknown]
  - Headache [Unknown]
  - Nausea [Unknown]
  - Product use in unapproved indication [Unknown]
